FAERS Safety Report 10300834 (Version 1)
Quarter: 2014Q3

REPORT INFORMATION
  Report Type: Spontaneous
  Country: US (occurrence: US)
  Receive Date: 20140714
  Receipt Date: 20140714
  Transmission Date: 20150326
  Serious: No
  Sender: FDA-Public Use
  Company Number: US-BIOGENIDEC-2014BI062976

PATIENT
  Sex: Male

DRUGS (2)
  1. TECFIDERA [Suspect]
     Active Substance: DIMETHYL FUMARATE
     Indication: MULTIPLE SCLEROSIS
     Route: 048
     Dates: start: 20140203, end: 20140513
  2. GILENYA [Concomitant]
     Active Substance: FINGOLIMOD HYDROCHLORIDE

REACTIONS (2)
  - Headache [Unknown]
  - Dizziness [Unknown]
